FAERS Safety Report 22937855 (Version 8)
Quarter: 2025Q3

REPORT INFORMATION
  Report Type: Spontaneous
  Country: PE (occurrence: PE)
  Receive Date: 20230913
  Receipt Date: 20250820
  Transmission Date: 20251021
  Serious: Yes (Life-Threatening, Other)
  Sender: SANDOZ
  Company Number: PE-002147023-NVSC2021PE144589

PATIENT
  Age: 36 Year
  Sex: Female

DRUGS (5)
  1. FULVESTRANT [Suspect]
     Active Substance: FULVESTRANT
     Indication: Breast cancer stage IV
     Route: 065
  2. KISQALI [Suspect]
     Active Substance: RIBOCICLIB SUCCINATE
     Indication: Breast cancer metastatic
     Dosage: 600 MG, QD (ONCE A DAY)
     Route: 048
     Dates: start: 20210618, end: 20240123
  3. KISQALI [Suspect]
     Active Substance: RIBOCICLIB SUCCINATE
     Indication: Breast cancer stage IV
     Route: 065
     Dates: start: 20210623, end: 20231119
  4. ZOMETA [Suspect]
     Active Substance: ZOLEDRONIC ACID
     Indication: Product used for unknown indication
     Dosage: UNK UNK, Q3MO (EVERY 3 MONTHS)
     Route: 065
     Dates: start: 2021
  5. ZOMETA [Suspect]
     Active Substance: ZOLEDRONIC ACID
     Dosage: UNK UNK, Q3MO (EVERY 3 MONTHS)
     Route: 065
     Dates: start: 202104

REACTIONS (31)
  - Feeling abnormal [Unknown]
  - Metastases to bone [Unknown]
  - Cellulitis [Unknown]
  - Breast cancer recurrent [Unknown]
  - Haemoglobin decreased [Unknown]
  - Tumour marker increased [Recovered/Resolved]
  - Bone lesion [Recovering/Resolving]
  - Gait inability [Recovered/Resolved]
  - Decreased immune responsiveness [Recovered/Resolved]
  - Feeding disorder [Unknown]
  - Fear [Unknown]
  - Skin lesion [Unknown]
  - Skin exfoliation [Unknown]
  - Skin depigmentation [Unknown]
  - Abscess limb [Unknown]
  - Injury [Unknown]
  - Erythema [Unknown]
  - Malaise [Unknown]
  - Dyspepsia [Unknown]
  - Sleep disorder [Unknown]
  - Bone pain [Unknown]
  - Decreased immune responsiveness [Unknown]
  - Tumour marker increased [Unknown]
  - Decreased appetite [Recovering/Resolving]
  - Pruritus [Recovered/Resolved]
  - Hypersensitivity [Unknown]
  - Nausea [Recovered/Resolved]
  - Pain [Recovered/Resolved]
  - Pain in extremity [Unknown]
  - Pain [Unknown]
  - Vomiting [Unknown]

NARRATIVE: CASE EVENT DATE: 20210623
